FAERS Safety Report 23556675 (Version 1)
Quarter: 2024Q1

REPORT INFORMATION
  Report Type: Spontaneous
  Country: PT (occurrence: PT)
  Receive Date: 20240223
  Receipt Date: 20240223
  Transmission Date: 20240410
  Serious: Yes (Hospitalization, Other)
  Sender: FDA-Public Use
  Company Number: None

PATIENT
  Age: 81 Year
  Sex: Male
  Weight: 55 kg

DRUGS (17)
  1. ETOPOSIDE [Suspect]
     Active Substance: ETOPOSIDE
     Indication: Small cell lung cancer
     Dosage: ETOPOSIDE 100MG IV, DAY 1, 21/21 DAYS; ORAL ETOPOSIDE 200MG, DAYS 2 AND 3
     Route: 042
     Dates: start: 20230928
  2. ZOLPIDEM [Concomitant]
     Active Substance: ZOLPIDEM TARTRATE
     Indication: Product used for unknown indication
     Dosage: WHEN LYING DOWN
     Route: 065
  3. METFORMIN\SITAGLIPTIN [Concomitant]
     Active Substance: METFORMIN\SITAGLIPTIN
     Indication: Product used for unknown indication
     Dosage: DOSAGE: 1 TOTAL
     Route: 065
  4. ASPIRIN DL-LYSINE [Concomitant]
     Active Substance: ASPIRIN DL-LYSINE
     Indication: Product used for unknown indication
     Dosage: AT LUNCH
     Route: 048
  5. OMEPRAZOLE [Concomitant]
     Active Substance: OMEPRAZOLE
     Indication: Product used for unknown indication
     Dosage: IN FASTING
  6. BISACODYL [Concomitant]
     Active Substance: BISACODYL
     Indication: Product used for unknown indication
     Dosage: AT DINNER (STOPS DIARRHEA)
     Route: 065
  7. ATORVASTATIN [Concomitant]
     Active Substance: ATORVASTATIN
     Indication: Product used for unknown indication
     Dosage: AT DINNER
     Route: 065
  8. lisinopril + amlodipina [Concomitant]
     Indication: Product used for unknown indication
     Dosage: DOSAGE: 1 TOTAL FOR BREAKFAST
     Route: 065
  9. CARBOPLATIN [Suspect]
     Active Substance: CARBOPLATIN
     Indication: Small cell lung cancer
     Dosage: AUC5 IV, DAY 1, 21/21 DAYS
     Route: 042
     Dates: start: 20230928
  10. DUTASTERIDE\TAMSULOSIN [Concomitant]
     Active Substance: DUTASTERIDE\TAMSULOSIN
     Indication: Product used for unknown indication
     Dosage: DOSAGE: 1 TOTAL
     Route: 048
  11. PENTOXIFYLLINE [Concomitant]
     Active Substance: PENTOXIFYLLINE
     Indication: Product used for unknown indication
  12. Cloreto de s?dio [Concomitant]
     Indication: Product used for unknown indication
     Route: 065
  13. ETOPOSIDE [Suspect]
     Active Substance: ETOPOSIDE
     Indication: Small cell lung cancer
     Dosage: ORAL ETOPOSIDE 200MG, DAYS 2 AND 3
     Route: 048
     Dates: start: 20230929
  14. HERBALS\SAW PALMETTO [Concomitant]
     Active Substance: HERBALS\SAW PALMETTO
     Indication: Product used for unknown indication
     Route: 048
  15. TECENTRIQ [Suspect]
     Active Substance: ATEZOLIZUMAB
     Indication: Small cell lung cancer
     Dosage: ATEZOLIZUMAB IV 1200MG, DAY 1, 21/21 DAYS
     Route: 042
     Dates: start: 20230928
  16. MAGNESIUM ASPARTATE [Concomitant]
     Active Substance: MAGNESIUM ASPARTATE
     Indication: Product used for unknown indication
     Dosage: 1 SACHET 2X/DAY
     Route: 065
  17. FUROSEMIDE [Concomitant]
     Active Substance: FUROSEMIDE
     Indication: Product used for unknown indication
     Dosage: FOR BREAKFAST
     Route: 065

REACTIONS (4)
  - Asthenia [Recovering/Resolving]
  - Intermittent claudication [Recovering/Resolving]
  - Febrile neutropenia [Unknown]
  - Iridocyclitis [Recovering/Resolving]

NARRATIVE: CASE EVENT DATE: 20231105
